FAERS Safety Report 19012163 (Version 2)
Quarter: 2021Q1

REPORT INFORMATION
  Report Type: Spontaneous
  Country: US (occurrence: US)
  Receive Date: 20210316
  Receipt Date: 20210323
  Transmission Date: 20210420
  Serious: No
  Sender: FDA-Public Use
  Company Number: US-BAYER-2021-105630

PATIENT
  Age: 77 Year
  Sex: Female

DRUGS (1)
  1. CLIMARA PRO [Suspect]
     Active Substance: ESTRADIOL\LEVONORGESTREL
     Indication: HORMONE REPLACEMENT THERAPY
     Dosage: UNK
     Route: 062
     Dates: start: 20210313

REACTIONS (3)
  - Wrong technique in device usage process [None]
  - Medical device site rash [Not Recovered/Not Resolved]
  - Device adhesion issue [None]

NARRATIVE: CASE EVENT DATE: 20210313
